FAERS Safety Report 16617007 (Version 1)
Quarter: 2019Q3

REPORT INFORMATION
  Report Type: Spontaneous
  Country: FR (occurrence: FR)
  Receive Date: 20190723
  Receipt Date: 20190723
  Transmission Date: 20191004
  Serious: Yes (Other)
  Sender: FDA-Public Use
  Company Number: FR-BRACCO-2019FR03505

PATIENT
  Age: 53 Year
  Sex: Female

DRUGS (3)
  1. BISOPROLOL FUMARATE. [Concomitant]
     Active Substance: BISOPROLOL FUMARATE
  2. PERINDOPRIL [Concomitant]
     Active Substance: PERINDOPRIL
  3. PROHANCE [Suspect]
     Active Substance: GADOTERIDOL
     Indication: SCAN
     Dosage: 1 DF, SINGLE
     Route: 042
     Dates: start: 20190619, end: 20190619

REACTIONS (5)
  - Hypotension [Recovered/Resolved]
  - Paralysis [Recovered/Resolved]
  - Paraesthesia [Recovered/Resolved]
  - Hypersensitivity [Recovered/Resolved]
  - Abdominal pain upper [Recovered/Resolved]

NARRATIVE: CASE EVENT DATE: 20190619
